FAERS Safety Report 7305173-9 (Version None)
Quarter: 2011Q1

REPORT INFORMATION
  Report Type: 
  Country: None (occurrence: None)
  Receive Date: 20110222
  Receipt Date: 20110209
  Transmission Date: 20110831
  Serious: Yes (Hospitalization)
  Sender: FDA-Public Use
  Company Number: FR-ELI_LILLY_AND_COMPANY-FR201102002918

PATIENT
  Sex: Male

DRUGS (1)
  1. EFFIENT [Suspect]
     Dosage: 10 MG, DAILY (1/D)
     Route: 048

REACTIONS (3)
  - BRONCHIECTASIS [None]
  - HAEMOPTYSIS [None]
  - HAEMORRHAGE [None]
